FAERS Safety Report 22916122 (Version 2)
Quarter: 2023Q4

REPORT INFORMATION
  Report Type: Spontaneous
  Country: US (occurrence: US)
  Receive Date: 20230907
  Receipt Date: 20231116
  Transmission Date: 20240109
  Serious: No
  Sender: FDA-Public Use
  Company Number: US-TRAVERE-2023TVT00421

PATIENT
  Age: 50 Year
  Sex: Female

DRUGS (7)
  1. FILSPARI [Suspect]
     Active Substance: SPARSENTAN
     Indication: IgA nephropathy
     Route: 048
     Dates: start: 20230807, end: 20230814
  2. Losartan/HCTZ  50-12.5mg [Concomitant]
  3. FARXIGA [Concomitant]
     Active Substance: DAPAGLIFLOZIN PROPANEDIOL
  4. ROSUVASTATIN [Concomitant]
     Active Substance: ROSUVASTATIN
  5. VITAMIN D [Concomitant]
     Active Substance: VITAMIN D NOS
  6. FISH OIL [Concomitant]
     Active Substance: FISH OIL
  7. IMVEXXY [Concomitant]
     Active Substance: ESTRADIOL

REACTIONS (5)
  - Dyspnoea [Recovering/Resolving]
  - Weight increased [Recovered/Resolved]
  - Joint swelling [Recovered/Resolved]
  - Fatigue [None]
  - Myalgia [Recovered/Resolved]
